FAERS Safety Report 10618934 (Version 1)
Quarter: 2014Q4

REPORT INFORMATION
  Report Type: Spontaneous
  Country: JP (occurrence: None)
  Receive Date: 20141126
  Receipt Date: 20141126
  Transmission Date: 20150529
  Serious: Yes (Other)
  Sender: FDA-Public Use
  Company Number: AE-SPE-2014-032

PATIENT
  Age: 56 Year
  Sex: Female

DRUGS (1)
  1. MEIACT MS [Suspect]
     Active Substance: CEFDITOREN PIVOXIL
     Dosage: UNKNOWN
     Route: 048
     Dates: start: 201304, end: 201304

REACTIONS (1)
  - Anaphylactoid reaction [None]
